FAERS Safety Report 9821175 (Version 3)
Quarter: 2014Q2

REPORT INFORMATION
  Report Type: Spontaneous
  Country: US (occurrence: US)
  Receive Date: 20140116
  Receipt Date: 20140528
  Transmission Date: 20141212
  Serious: Yes (Hospitalization, Other)
  Sender: FDA-Public Use
  Company Number: US-RB-062540-14

PATIENT
  Age: 0 Year
  Sex: Male

DRUGS (10)
  1. BUPRENORPHINE GENERIC [Suspect]
     Route: 064
     Dates: start: 2013, end: 20131030
  2. BUPRENORPHINE GENERIC [Suspect]
     Dosage: MOTHER CUT INTO PIECES AND TOOK VARIOUS PIECES THROUGH THE DAY. TAPERED FROM 16 TO 12 TO 10 MG DAILY
     Route: 063
     Dates: start: 20131030, end: 20131229
  3. BUPRENORPHINE GENERIC [Suspect]
     Indication: DRUG DEPENDENCE
     Route: 063
     Dates: start: 201401, end: 201405
  4. BUPRENORPHINE GENERIC [Suspect]
     Dosage: DOSING DETAILS UNKNOWN, MOTHER WAS WEANING OFF
     Route: 063
     Dates: start: 201405, end: 201405
  5. BUPRENORPHINE GENERIC [Suspect]
     Dosage: DOSING DETAILS UNKNOWN
     Route: 063
     Dates: start: 201405
  6. SUBOXONE FILM [Suspect]
     Indication: DRUG DEPENDENCE
     Dosage: SUBOXONE FILM
     Route: 063
     Dates: start: 20131230, end: 201401
  7. NICOTINE [Suspect]
     Dosage: MOTHER WAS SMOKING 3-4 CIGARETTES A DAY
     Route: 064
     Dates: start: 2013, end: 20131030
  8. NICOTINE [Suspect]
     Indication: NICOTINE DEPENDENCE
     Dosage: MOTHER WAS SMOKING 3-4 CIGARETTES A DAY
     Route: 063
     Dates: start: 20131030, end: 201405
  9. NICOTINE [Suspect]
     Dosage: SMOKING 3-4 DAILY
     Route: 063
     Dates: start: 201405, end: 201405
  10. NICOTINE [Suspect]
     Dosage: SMOKING 3-4 DAILY
     Route: 063
     Dates: start: 201405

REACTIONS (11)
  - Foetal exposure during pregnancy [Recovered/Resolved]
  - Premature baby [Recovered/Resolved]
  - Low birth weight baby [Unknown]
  - Exposure during breast feeding [Not Recovered/Not Resolved]
  - Irritability [Recovered/Resolved]
  - Infantile spitting up [Recovered/Resolved]
  - Hyperkinesia neonatal [Recovered/Resolved]
  - Faeces discoloured [Recovered/Resolved]
  - Abnormal faeces [Recovered/Resolved]
  - Feeding disorder neonatal [Recovered/Resolved]
  - Drug withdrawal syndrome neonatal [Recovered/Resolved]
